FAERS Safety Report 4505368-3 (Version None)
Quarter: 2004Q4

REPORT INFORMATION
  Report Type: 
  Country: None (occurrence: None)
  Receive Date: 20041015
  Receipt Date: 20040311
  Transmission Date: 20050328
  Serious: Yes (Other)
  Sender: FDA-Public Use
  Company Number: 2004017465

PATIENT
  Age: 33 Year
  Sex: Female
  Weight: 72.1219 kg

DRUGS (2)
  1. NEURONTIN [Suspect]
     Indication: NEURALGIA
     Dosage: 900 MG TID ORAL
     Route: 048
     Dates: start: 20040101, end: 20040310
  2. VICODIN [Concomitant]

REACTIONS (9)
  - ADNEXA UTERI PAIN [None]
  - BLEPHAROSPASM [None]
  - EYE PAIN [None]
  - MENORRHAGIA [None]
  - METRORRHAGIA [None]
  - PELVIC PAIN [None]
  - PHOBIA OF DRIVING [None]
  - READING DISORDER [None]
  - VISION BLURRED [None]
